FAERS Safety Report 18317928 (Version 1)
Quarter: 2020Q3

REPORT INFORMATION
  Report Type: Spontaneous
  Country: US (occurrence: US)
  Receive Date: 20200918
  Receipt Date: 20200918
  Transmission Date: 20201103
  Serious: Yes (Other)
  Sender: FDA-Public Use
  Company Number: None

PATIENT
  Age: 1 Decade
  Sex: Male

DRUGS (7)
  1. IMMUNOGLOBULINS, INTRAVENOUS [Suspect]
     Active Substance: HUMAN IMMUNOGLOBULIN G
     Dosage: ?          OTHER DOSE:2G/KG;?
     Route: 042
     Dates: start: 2020
  2. TOCILIZUMAB. [Suspect]
     Active Substance: TOCILIZUMAB
     Indication: COVID-19
     Dosage: ?          OTHER DOSE:8MG/KG;OTHER FREQUENCY:OVER 2 HOURS;?
     Route: 042
     Dates: start: 2020
  3. MEROPENEM. [Suspect]
     Active Substance: MEROPENEM
     Indication: COVID-19
     Dates: start: 2020
  4. CEFTRIAXONE. [Suspect]
     Active Substance: CEFTRIAXONE
     Indication: COVID-19
     Dates: start: 2020
  5. VANCOMYCIN [Suspect]
     Active Substance: VANCOMYCIN
     Indication: COVID-19
     Dates: start: 2020
  6. CLINDAMYCIN. [Suspect]
     Active Substance: CLINDAMYCIN
     Indication: COVID-19
     Dates: start: 2020
  7. ASPIRIN. [Suspect]
     Active Substance: ASPIRIN
     Indication: COVID-19
     Route: 048
     Dates: start: 2020

REACTIONS (3)
  - Product use issue [None]
  - Product use in unapproved indication [None]
  - Systemic inflammatory response syndrome [None]
